FAERS Safety Report 6126259-0 (Version None)
Quarter: 2009Q1

REPORT INFORMATION
  Report Type: 
  Country: None (occurrence: None)
  Receive Date: 20090320
  Receipt Date: 20090213
  Transmission Date: 20090719
  Serious: No
  Sender: FDA-Public Use
  Company Number: A0768477A

PATIENT
  Age: 51 Year
  Sex: Male

DRUGS (5)
  1. PROMACTA [Suspect]
     Indication: IDIOPATHIC THROMBOCYTOPENIC PURPURA
     Dosage: 50MG PER DAY
     Route: 048
     Dates: start: 20090210
  2. DIGOXIN [Concomitant]
  3. ARIXTRA [Concomitant]
  4. PREDNISONE [Concomitant]
  5. PERCODAN-DEMI [Concomitant]

REACTIONS (1)
  - PLATELET COUNT DECREASED [None]
